FAERS Safety Report 18962344 (Version 2)
Quarter: 2021Q2

REPORT INFORMATION
  Report Type: Report from Study
  Country: US (occurrence: US)
  Receive Date: 20210302
  Receipt Date: 20210409
  Transmission Date: 20210717
  Serious: No
  Sender: FDA-Public Use
  Company Number: US-ACADIA PHARMACEUTICALS INC.-ACA-2021-PIM-000745

PATIENT
  Sex: Female

DRUGS (11)
  1. REQUIP [Concomitant]
     Active Substance: ROPINIROLE HYDROCHLORIDE
  2. AZILECT [Concomitant]
     Active Substance: RASAGILINE MESYLATE
  3. TRIHEXYPHENIDYL [Concomitant]
     Active Substance: TRIHEXYPHENIDYL
  4. RYTARY [Concomitant]
     Active Substance: CARBIDOPA\LEVODOPA
     Indication: DYSKINESIA
  5. MYRBETRIQ [Concomitant]
     Active Substance: MIRABEGRON
  6. NUPLAZID [Suspect]
     Active Substance: PIMAVANSERIN TARTRATE
     Indication: PARKINSON^S DISEASE
     Dosage: 34 MILLIGRAM, QD
     Route: 048
     Dates: start: 20210115, end: 20210121
  7. GOCOVRI [Concomitant]
     Active Substance: AMANTADINE
  8. TRIAMTERENE. [Concomitant]
     Active Substance: TRIAMTERENE
  9. RASAGILINE. [Concomitant]
     Active Substance: RASAGILINE
  10. ROPINIROLE. [Concomitant]
     Active Substance: ROPINIROLE
  11. GOCOVRI [Suspect]
     Active Substance: AMANTADINE
     Indication: DYSKINESIA
     Dosage: 274 MILLIGRAM, QD, BEDTIME
     Dates: start: 20180308

REACTIONS (3)
  - Dizziness [Recovered/Resolved]
  - Adverse drug reaction [Recovered/Resolved]
  - Dry mouth [Recovered/Resolved]
